FAERS Safety Report 4914892-0 (Version None)
Quarter: 2006Q1

REPORT INFORMATION
  Report Type: 
  Country: None (occurrence: None)
  Receive Date: 20060217
  Receipt Date: 19990421
  Transmission Date: 20060701
  Serious: Yes (Hospitalization, Other)
  Sender: FDA-Public Use
  Company Number: US-BOEHRINGER INGELHEIM PHARMACEUTICALS, INC.-1999-BP-00494

PATIENT
  Age: 3 Year
  Sex: Male
  Weight: 13.9 kg

DRUGS (13)
  1. VIRAMUNE [Suspect]
     Indication: HIV INFECTION
     Route: 048
     Dates: start: 19980730, end: 19990217
  2. VIRACEPT [Suspect]
     Indication: HIV INFECTION
     Route: 048
     Dates: start: 19980730, end: 19990217
  3. NORVIR [Suspect]
     Indication: HIV INFECTION
     Route: 048
     Dates: start: 19980730, end: 19990217
  4. DIDANOSINE [Suspect]
     Indication: HIV INFECTION
     Route: 048
     Dates: start: 19980730, end: 19990217
  5. CIPRO [Concomitant]
  6. FLAGYL [Concomitant]
  7. DIFLUCAN [Concomitant]
  8. DAPSONE [Concomitant]
  9. DAPSONE [Concomitant]
  10. BIAXIN [Concomitant]
  11. VANCOMYCIN [Concomitant]
  12. IMIPENEM [Concomitant]
  13. ACYCLOVIR SODIUM [Concomitant]

REACTIONS (12)
  - ALANINE AMINOTRANSFERASE INCREASED [None]
  - ANAEMIA [None]
  - ASPARTATE AMINOTRANSFERASE INCREASED [None]
  - CELLULITIS [None]
  - LIVER FUNCTION TEST ABNORMAL [None]
  - NEUTROPENIA [None]
  - OSTEOMYELITIS [None]
  - PRURITUS [None]
  - PYREXIA [None]
  - RASH ERYTHEMATOUS [None]
  - RASH GENERALISED [None]
  - RASH MACULAR [None]
